FAERS Safety Report 25287619 (Version 2)
Quarter: 2025Q2

REPORT INFORMATION
  Report Type: Spontaneous
  Country: JP (occurrence: JP)
  Receive Date: 20250509
  Receipt Date: 20250515
  Transmission Date: 20250717
  Serious: No
  Sender: PFIZER
  Company Number: JP-PFIZER INC-202500096602

PATIENT

DRUGS (1)
  1. ENBREL [Suspect]
     Active Substance: ETANERCEPT

REACTIONS (4)
  - Device defective [Unknown]
  - Device mechanical issue [Unknown]
  - Device delivery system issue [Unknown]
  - Needle issue [Unknown]
